FAERS Safety Report 5099119-4 (Version None)
Quarter: 2006Q3

REPORT INFORMATION
  Report Type: 
  Country: None (occurrence: None)
  Receive Date: 20060731
  Receipt Date: 20060301
  Transmission Date: 20061208
  Serious: Yes (Other)
  Sender: FDA-Public Use
  Company Number: 218520

PATIENT
  Age: 14 Year
  Sex: Male

DRUGS (1)
  1. RITUXAN [Suspect]
     Indication: WEGENER'S GRANULOMATOSIS
     Dosage: 375 MG/M2
     Dates: start: 20051004

REACTIONS (2)
  - HEADACHE [None]
  - VOMITING [None]
